FAERS Safety Report 19694223 (Version 3)
Quarter: 2021Q3

REPORT INFORMATION
  Report Type: Report from Study
  Country: US (occurrence: US)
  Receive Date: 20210813
  Receipt Date: 20210830
  Transmission Date: 20211014
  Serious: No
  Sender: FDA-Public Use
  Company Number: NVSC2021US182081

PATIENT
  Sex: Male

DRUGS (1)
  1. ENTRESTO [Suspect]
     Active Substance: SACUBITRIL\VALSARTAN
     Indication: PRODUCT USED FOR UNKNOWN INDICATION
     Dosage: BID (24/26 MG)
     Route: 048
     Dates: start: 202107

REACTIONS (6)
  - Malaise [Unknown]
  - Dizziness [Unknown]
  - Secretion discharge [Unknown]
  - Balance disorder [Unknown]
  - Feeling abnormal [Unknown]
  - Hypotension [Unknown]
